FAERS Safety Report 18458009 (Version 1)
Quarter: 2020Q4

REPORT INFORMATION
  Report Type: Spontaneous
  Country: US (occurrence: US)
  Receive Date: 20201103
  Receipt Date: 20201103
  Transmission Date: 20210114
  Serious: Yes (Other)
  Sender: FDA-Public Use
  Company Number: US-SA-2020SA304208

PATIENT

DRUGS (4)
  1. KEYTRUDA [Concomitant]
     Active Substance: PEMBROLIZUMAB
  2. CABOMETYX [Suspect]
     Active Substance: CABOZANTINIB S-MALATE
     Indication: RENAL CELL CARCINOMA
     Dosage: 60 MG, QD
     Route: 048
  3. CABOMETYX [Suspect]
     Active Substance: CABOZANTINIB S-MALATE
     Dosage: 60 MG, QOD
     Route: 048
     Dates: start: 20200724, end: 20200911
  4. IRBESARTAN. [Suspect]
     Active Substance: IRBESARTAN
     Indication: PRODUCT USED FOR UNKNOWN INDICATION

REACTIONS (13)
  - Lip swelling [Not Recovered/Not Resolved]
  - Inappropriate schedule of product administration [Unknown]
  - Weight decreased [Not Recovered/Not Resolved]
  - Dry mouth [Not Recovered/Not Resolved]
  - Burn oral cavity [Not Recovered/Not Resolved]
  - Fatigue [Recovering/Resolving]
  - Blood pressure increased [Unknown]
  - Peripheral swelling [Not Recovered/Not Resolved]
  - Dizziness [Unknown]
  - Blood pressure fluctuation [Not Recovered/Not Resolved]
  - Platelet count decreased [Unknown]
  - Taste disorder [Not Recovered/Not Resolved]
  - Decreased appetite [Not Recovered/Not Resolved]

NARRATIVE: CASE EVENT DATE: 20200724
